FAERS Safety Report 5593131-4 (Version None)
Quarter: 2008Q1

REPORT INFORMATION
  Report Type: 
  Country: None (occurrence: None)
  Receive Date: 20080114
  Receipt Date: 20080114
  Transmission Date: 20080703
  Serious: Yes (Life-Threatening)
  Sender: FDA-Public Use
  Company Number: None

PATIENT
  Age: 59 Year
  Sex: Male
  Weight: 158 kg

DRUGS (3)
  1. GEMFIBROZIL [Suspect]
     Indication: HYPERLIPIDAEMIA
     Dosage: 600MG  BID  PO
     Route: 048
     Dates: start: 20071120, end: 20080109
  2. GEMFIBROZIL [Suspect]
     Indication: HYPERTRIGLYCERIDAEMIA
     Dosage: 600MG  BID  PO
     Route: 048
     Dates: start: 20071120, end: 20080109
  3. SIMVASTATIN [Suspect]
     Indication: HYPERLIPIDAEMIA
     Dosage: 80MG  HS  PO
     Route: 048
     Dates: end: 20080109

REACTIONS (8)
  - ASTHENIA [None]
  - BLOOD CREATININE INCREASED [None]
  - BLOOD UREA INCREASED [None]
  - CHROMATURIA [None]
  - HAEMATURIA [None]
  - HAEMORRHAGE [None]
  - MYALGIA [None]
  - RENAL FAILURE ACUTE [None]
